FAERS Safety Report 5325061-7 (Version None)
Quarter: 2007Q2

REPORT INFORMATION
  Report Type: 
  Country: None (occurrence: None)
  Receive Date: 20070511
  Receipt Date: 20070511
  Transmission Date: 20071010
  Serious: Yes (Life-Threatening)
  Sender: FDA-Public Use
  Company Number: None

PATIENT
  Age: 16 Year
  Sex: Male
  Weight: 73 kg

DRUGS (3)
  1. ACETADOTE [Suspect]
     Indication: OVERDOSE
     Dosage: 11,000 MG IV
     Route: 042
     Dates: start: 20070504, end: 20070504
  2. BENADRYL [Concomitant]
  3. D5-1/2NS + KCL [Concomitant]

REACTIONS (3)
  - ANGIOEDEMA [None]
  - INFUSION RELATED REACTION [None]
  - RASH [None]
